FAERS Safety Report 9379232 (Version 1)
Quarter: 2013Q3

REPORT INFORMATION
  Report Type: Spontaneous
  Country: US (occurrence: US)
  Receive Date: 20130702
  Receipt Date: 20130702
  Transmission Date: 20140515
  Serious: Yes (Other)
  Sender: FDA-Public Use
  Company Number: US-JNJFOC-20130613071

PATIENT
  Sex: Male

DRUGS (1)
  1. INVEGA SUSTENNA [Suspect]
     Indication: SUBSTANCE-INDUCED PSYCHOTIC DISORDER
     Route: 030
     Dates: start: 201302, end: 201305

REACTIONS (2)
  - Drug abuse [Unknown]
  - Drug dose omission [Unknown]
